FAERS Safety Report 5964492-9 (Version None)
Quarter: 2008Q4

REPORT INFORMATION
  Report Type: 
  Country: None (occurrence: None)
  Receive Date: 20081122
  Receipt Date: 20081122
  Transmission Date: 20090506
  Serious: Yes (Life-Threatening, Hospitalization)
  Sender: FDA-Public Use
  Company Number: None

PATIENT
  Sex: Female
  Weight: 122.4712 kg

DRUGS (1)
  1. METHOTREXATE [Suspect]
     Indication: PSORIATIC ARTHROPATHY
     Dosage: 2.5 MG AT ONE TIME 6 OR 8 WEEKLY ON SAME DAY ORAL
     Route: 048
     Dates: start: 20071206, end: 20080409

REACTIONS (8)
  - ABSCESS [None]
  - CELLULITIS [None]
  - CHRONIC OBSTRUCTIVE PULMONARY DISEASE [None]
  - CONDITION AGGRAVATED [None]
  - FALL [None]
  - IMMUNE SYSTEM DISORDER [None]
  - PNEUMONIA [None]
  - SLEEP APNOEA SYNDROME [None]
